FAERS Safety Report 11543674 (Version 1)
Quarter: 2015Q3

REPORT INFORMATION
  Report Type: Spontaneous
  Country: US (occurrence: US)
  Receive Date: 20150924
  Receipt Date: 20150924
  Transmission Date: 20151125
  Serious: No
  Sender: FDA-Public Use
  Company Number: US-AMGEN-USASP2015094127

PATIENT
  Age: 56 Year
  Sex: Female

DRUGS (11)
  1. ATENOLOL. [Concomitant]
     Active Substance: ATENOLOL
     Dosage: 25 MG
  2. PREDNISONE. [Concomitant]
     Active Substance: PREDNISONE
     Dosage: 54 612-5 MG
  3. SYNTHROID [Concomitant]
     Active Substance: LEVOTHYROXINE SODIUM
     Dosage: 137-137 MUG
  4. BUSPIRONE HCL [Concomitant]
     Active Substance: BUSPIRONE HYDROCHLORIDE
     Dosage: MB3/55 5-15MG
  5. PREMARIN [Concomitant]
     Active Substance: ESTROGENS, CONJUGATED
     Dosage: 0.625 MG
  6. L-THYROXINE                        /00068002/ [Concomitant]
     Dosage: 137-137 MCG
  7. NEFAZODONE HCL [Concomitant]
     Dosage: 93/1024-100 MG
  8. METHOTREXATE [Concomitant]
     Active Substance: METHOTREXATE
     Dosage: 54 323-2.5 MG
  9. VESICARE [Concomitant]
     Active Substance: SOLIFENACIN SUCCINATE
     Dosage: 150-5 MG
  10. FOLIC ACID. [Concomitant]
     Active Substance: FOLIC ACID
     Dosage: V/1362-1 MG
  11. ENBREL [Suspect]
     Active Substance: ETANERCEPT
     Indication: RHEUMATOID ARTHRITIS
     Dosage: 50 MG, QWK
     Route: 058
     Dates: start: 20140812, end: 20150904

REACTIONS (3)
  - Pain [Unknown]
  - Intervertebral disc degeneration [Unknown]
  - Urinary tract infection [Unknown]
